FAERS Safety Report 12904762 (Version 3)
Quarter: 2016Q4

REPORT INFORMATION
  Report Type: Spontaneous
  Country: SE (occurrence: SE)
  Receive Date: 20161102
  Receipt Date: 20161216
  Transmission Date: 20170207
  Serious: Yes (Other)
  Sender: FDA-Public Use
  Company Number: SE-GLAXOSMITHKLINE-SE2016GSK147080

PATIENT
  Age: 72 Year
  Sex: Female
  Weight: 85 kg

DRUGS (7)
  1. LAXIDO [Concomitant]
     Active Substance: POLYETHYLENE GLYCOL 3350\POTASSIUM CHLORIDE\SODIUM BICARBONATE\SODIUM CHLORIDE
  2. MADOPARK QUICK MITE [Suspect]
     Active Substance: BENSERAZIDE HYDROCHLORIDE\LEVODOPA
     Indication: PRODUCT USED FOR UNKNOWN INDICATION
     Dosage: UNK, PRN
     Dates: start: 2008
  3. REQUIP [Suspect]
     Active Substance: ROPINIROLE HYDROCHLORIDE
     Indication: PRODUCT USED FOR UNKNOWN INDICATION
     Dosage: UNK
  4. OMEPRAZOL [Concomitant]
     Active Substance: OMEPRAZOLE
  5. LAKTULOS [Concomitant]
  6. REQUIP [Suspect]
     Active Substance: ROPINIROLE HYDROCHLORIDE
     Dosage: 8 MG, QD
  7. MADOPARK [Suspect]
     Active Substance: BENSERAZIDE HYDROCHLORIDE\LEVODOPA
     Indication: PRODUCT USED FOR UNKNOWN INDICATION
     Dosage: 7.5 DF, QD
     Dates: start: 2000

REACTIONS (17)
  - Eyelid ptosis [Not Recovered/Not Resolved]
  - Torticollis [Not Recovered/Not Resolved]
  - Hyperhidrosis [Unknown]
  - Dyspnoea exertional [Unknown]
  - Neck pain [Unknown]
  - Confusional state [Unknown]
  - Myasthenia gravis [Unknown]
  - Visual field defect [Unknown]
  - Dyskinesia [Unknown]
  - Dystonia [Unknown]
  - Posture abnormal [Unknown]
  - Vision blurred [Unknown]
  - Musculoskeletal discomfort [Not Recovered/Not Resolved]
  - Dysphagia [Unknown]
  - Product difficult to swallow [Unknown]
  - Restless legs syndrome [Unknown]
  - Musculoskeletal stiffness [Unknown]

NARRATIVE: CASE EVENT DATE: 2016
